FAERS Safety Report 13271942 (Version 3)
Quarter: 2017Q1

REPORT INFORMATION
  Report Type: Spontaneous
  Country: JP (occurrence: JP)
  Receive Date: 20170227
  Receipt Date: 20170310
  Transmission Date: 20170428
  Serious: Yes (Death, Life-Threatening, Hospitalization, Other)
  Sender: FDA-Public Use
  Company Number: JP-SUN PHARMACEUTICAL INDUSTRIES LTD-2017RR-133740

PATIENT
  Age: 71 Year
  Sex: Female
  Weight: 46 kg

DRUGS (2)
  1. BORTEZOMIB [Suspect]
     Active Substance: BORTEZOMIB
     Indication: CONDITION AGGRAVATED
     Dosage: UNK
     Route: 065
  2. DEXAMETHASONE. [Suspect]
     Active Substance: DEXAMETHASONE
     Indication: CONDITION AGGRAVATED
     Dosage: 20 MG, DAILY
     Route: 065

REACTIONS (2)
  - Condition aggravated [Fatal]
  - Treatment failure [Not Recovered/Not Resolved]
